FAERS Safety Report 13001461 (Version 1)
Quarter: 2016Q4

REPORT INFORMATION
  Report Type: Spontaneous
  Country: US (occurrence: US)
  Receive Date: 20161203
  Receipt Date: 20161203
  Transmission Date: 20170207
  Serious: No
  Sender: FDA-Public Use
  Company Number: None

PATIENT
  Age: 7 Year
  Sex: Male
  Weight: 25.9 kg

DRUGS (10)
  1. METHOTREXATE. [Suspect]
     Active Substance: METHOTREXATE
     Dates: end: 20161020
  2. CYTARABINE. [Suspect]
     Active Substance: CYTARABINE
     Dosage: MG
     Dates: end: 20151203
  3. VINCRISTINE SULFATE. [Suspect]
     Active Substance: VINCRISTINE SULFATE
     Dates: end: 20161027
  4. DEXAMETHASONE. [Suspect]
     Active Substance: DEXAMETHASONE
     Dosage: MG
     Dates: end: 20151104
  5. CYCLOPHOSPHAMIDE. [Suspect]
     Active Substance: CYCLOPHOSPHAMIDE
     Dosage: MG
     Dates: end: 20151119
  6. THIOGUANINE (6-TG) [Suspect]
     Active Substance: THIOGUANINE ANHYDROUS
     Dosage: MG
     Dates: end: 20151203
  7. MERCAPTOPURINE. [Suspect]
     Active Substance: MERCAPTOPURINE
     Dates: end: 20161111
  8. PREDNISONE. [Suspect]
     Active Substance: PREDNISONE
     Dates: end: 20161031
  9. DOXORUBICIN HYDROCHLORIDE. [Suspect]
     Active Substance: DOXORUBICIN HYDROCHLORIDE
     Dosage: MG
     Dates: end: 20151029
  10. ONCASPAR [Suspect]
     Active Substance: PEGASPARGASE
     Dosage: IU
     Dates: end: 20151204

REACTIONS (4)
  - Hyperbilirubinaemia [None]
  - Liver function test increased [None]
  - Alanine aminotransferase increased [None]
  - Aspartate aminotransferase increased [None]

NARRATIVE: CASE EVENT DATE: 20161112
